FAERS Safety Report 9154259 (Version 2)
Quarter: 2013Q2

REPORT INFORMATION
  Report Type: Spontaneous
  Country: IT (occurrence: IT)
  Receive Date: 20130311
  Receipt Date: 20130416
  Transmission Date: 20140414
  Serious: Yes (Hospitalization)
  Sender: FDA-Public Use
  Company Number: IT-PFIZER INC-2013079950

PATIENT
  Age: 19 Year
  Sex: Female

DRUGS (1)
  1. XANAX [Suspect]
     Dosage: 20 ML (TOTAL DOSE)
     Route: 048
     Dates: start: 20130109, end: 20130109

REACTIONS (1)
  - Sopor [Recovering/Resolving]
